FAERS Safety Report 21029713 (Version 7)
Quarter: 2023Q4

REPORT INFORMATION
  Report Type: Spontaneous
  Country: IE (occurrence: IE)
  Receive Date: 20220630
  Receipt Date: 20231128
  Transmission Date: 20240110
  Serious: Yes (Other)
  Sender: FDA-Public Use
  Company Number: IE-CELLTRION INC.-2022IE010165

PATIENT

DRUGS (27)
  1. RITUXIMAB [Suspect]
     Active Substance: RITUXIMAB
     Indication: Follicular lymphoma
     Dosage: LAST DOSE DATE: 20/FEB/2022 (PHARMACEUTICAL DOSE FORM: UNKNOWN)
     Route: 065
     Dates: start: 20220104, end: 20220220
  2. RITUXIMAB [Suspect]
     Active Substance: RITUXIMAB
     Dosage: UNK
     Route: 065
     Dates: start: 20220902, end: 20221019
  3. RITUXIMAB [Suspect]
     Active Substance: RITUXIMAB
     Dosage: UNK
     Route: 065
     Dates: start: 20220505, end: 20220726
  4. DOXORUBICIN [Suspect]
     Active Substance: DOXORUBICIN
     Indication: Follicular lymphoma
     Dosage: LAST DOSE DATE: 05/NOV/2021
     Route: 065
     Dates: start: 20210414, end: 20211105
  5. OBINUTUZUMAB [Suspect]
     Active Substance: OBINUTUZUMAB
     Indication: Follicular lymphoma
     Dosage: LAST DOSE DATE: 05/NOV/2021
     Route: 042
     Dates: start: 20210414, end: 20211105
  6. ETOPOSIDE [Suspect]
     Active Substance: ETOPOSIDE
     Indication: Follicular lymphoma
     Dosage: LAST DOSE DATE: 20/FEB/2022
     Route: 065
     Dates: start: 20220104, end: 20220220
  7. ETOPOSIDE [Suspect]
     Active Substance: ETOPOSIDE
     Dosage: UNK
     Dates: start: 20220902, end: 20221019
  8. CYCLOPHOSPHAMIDE [Suspect]
     Active Substance: CYCLOPHOSPHAMIDE
     Indication: Follicular lymphoma
     Dosage: LAST DOSE DATE: 05/NOV/2021
     Route: 065
     Dates: start: 20210414, end: 20211105
  9. CARBOPLATIN [Suspect]
     Active Substance: CARBOPLATIN
     Indication: Follicular lymphoma
     Dosage: LAST DOSE DATE: 20/FEB/2022
     Route: 065
     Dates: start: 20220104, end: 20220220
  10. IDELALISIB [Suspect]
     Active Substance: IDELALISIB
     Indication: Follicular lymphoma
     Dosage: LAST DOSE DATE: 17/MAY/2022
     Route: 065
     Dates: start: 20220225, end: 20220517
  11. IDELALISIB [Suspect]
     Active Substance: IDELALISIB
     Dosage: UNK
     Dates: start: 20220225, end: 20220501
  12. PREDNISONE [Suspect]
     Active Substance: PREDNISONE
     Indication: Follicular lymphoma
     Dosage: LAST DOSE DATE: 05/NOV/2021
     Route: 065
     Dates: start: 20210414, end: 20211105
  13. VINCRISTINE [Suspect]
     Active Substance: VINCRISTINE
     Indication: Follicular lymphoma
     Dosage: LAST DOSE DATE: 05/NOV/2021
     Route: 065
     Dates: start: 20210414, end: 20211105
  14. IFOSFAMIDE [Suspect]
     Active Substance: IFOSFAMIDE
     Indication: Follicular lymphoma
     Dosage: LAST DOSE DATE: 20/FEB/2022
     Route: 065
     Dates: start: 20220104, end: 20220220
  15. LENALIDOMIDE [Suspect]
     Active Substance: LENALIDOMIDE
     Indication: Follicular lymphoma
     Dosage: UNK
     Route: 065
     Dates: start: 20220505, end: 20220726
  16. CISPLATIN [Suspect]
     Active Substance: CISPLATIN
     Indication: Follicular lymphoma
     Dosage: UNK
     Dates: start: 20220902, end: 20221019
  17. METHYLPREDNISOLONE ACETATE [Suspect]
     Active Substance: METHYLPREDNISOLONE ACETATE
     Indication: Follicular lymphoma
     Dosage: UNK
     Dates: start: 20220902, end: 20221019
  18. CYTARABINE [Suspect]
     Active Substance: CYTARABINE
     Indication: Follicular lymphoma
     Dosage: UNK
     Dates: start: 20220902, end: 20221019
  19. BENDAMUSTINE [Suspect]
     Active Substance: BENDAMUSTINE
     Indication: Follicular lymphoma
     Dosage: UNK
     Dates: start: 20220505, end: 20220726
  20. METHYLPREDNISOLONE [Suspect]
     Active Substance: METHYLPREDNISOLONE
     Indication: Follicular lymphoma
     Dosage: UNK
     Route: 065
     Dates: start: 20220902, end: 20221019
  21. CYTARABINE [Suspect]
     Active Substance: CYTARABINE
     Indication: Follicular lymphoma
     Dosage: UNK
     Route: 065
     Dates: start: 20220902, end: 20221019
  22. CISPLATIN [Suspect]
     Active Substance: CISPLATIN
     Indication: Follicular lymphoma
     Dosage: UNK
     Route: 065
     Dates: start: 20220902, end: 20221019
  23. BENDAMUSTINE HYDROCHLORIDE [Suspect]
     Active Substance: BENDAMUSTINE HYDROCHLORIDE
     Indication: Follicular lymphoma
     Dosage: UNK
     Route: 065
     Dates: start: 20220505, end: 20220726
  24. OBINUTUZUMAB [Suspect]
     Active Substance: OBINUTUZUMAB
     Indication: Follicular lymphoma
     Dosage: UNK
     Route: 042
     Dates: start: 20210414, end: 20211105
  25. MOSUNETUZUMAB [Suspect]
     Active Substance: MOSUNETUZUMAB
     Indication: Follicular lymphoma
     Dosage: UNK
     Dates: start: 20221124
  26. MOSUNETUZUMAB [Suspect]
     Active Substance: MOSUNETUZUMAB
     Dosage: 1 MG, 1/WEEK
     Route: 042
     Dates: start: 20221124
  27. SULFAMETHOXAZOLE\TRIMETHOPRIM [Concomitant]
     Active Substance: SULFAMETHOXAZOLE\TRIMETHOPRIM
     Dosage: 960 G

REACTIONS (4)
  - Disease progression [Unknown]
  - COVID-19 [Recovered/Resolved]
  - Blood lactate dehydrogenase increased [Unknown]
  - Treatment failure [Unknown]

NARRATIVE: CASE EVENT DATE: 20221201
